FAERS Safety Report 23237843 (Version 3)
Quarter: 2024Q3

REPORT INFORMATION
  Report Type: Spontaneous
  Country: IT (occurrence: IT)
  Receive Date: 20231128
  Receipt Date: 20240710
  Transmission Date: 20241016
  Serious: Yes (Other)
  Sender: CELLTRION
  Company Number: IT-CELLTRION INC.-2023IT022686

PATIENT

DRUGS (12)
  1. RITUXIMAB [Suspect]
     Active Substance: RITUXIMAB
     Indication: Diffuse large B-cell lymphoma
     Dosage: UNK
     Route: 065
     Dates: start: 201706
  2. RITUXIMAB [Suspect]
     Active Substance: RITUXIMAB
     Indication: Lymphoma transformation
  3. BENDAMUSTINE [Suspect]
     Active Substance: BENDAMUSTINE
     Indication: Lymphoma transformation
     Dosage: UNK
     Route: 065
     Dates: start: 201706
  4. BENDAMUSTINE [Suspect]
     Active Substance: BENDAMUSTINE
     Indication: Diffuse large B-cell lymphoma
  5. OXALIPLATIN [Suspect]
     Active Substance: OXALIPLATIN
     Indication: Lymphoma transformation
     Dosage: UNK
     Route: 065
     Dates: start: 202008, end: 202101
  6. OXALIPLATIN [Suspect]
     Active Substance: OXALIPLATIN
     Indication: Diffuse large B-cell lymphoma
  7. DEXAMETHASONE [Suspect]
     Active Substance: DEXAMETHASONE
     Indication: Lymphoma transformation
     Dosage: UNK
     Route: 065
     Dates: start: 202008, end: 202101
  8. DEXAMETHASONE [Suspect]
     Active Substance: DEXAMETHASONE
     Indication: Diffuse large B-cell lymphoma
  9. CYTARABINE [Suspect]
     Active Substance: CYTARABINE
     Indication: Lymphoma transformation
     Dosage: UNK
     Route: 065
     Dates: start: 202008, end: 202101
  10. CYTARABINE [Suspect]
     Active Substance: CYTARABINE
     Indication: Diffuse large B-cell lymphoma
  11. POLATUZUMAB VEDOTIN [Suspect]
     Active Substance: POLATUZUMAB VEDOTIN
     Indication: Lymphoma transformation
     Dosage: UNK
     Route: 065
     Dates: start: 202206, end: 202212
  12. POLATUZUMAB VEDOTIN [Suspect]
     Active Substance: POLATUZUMAB VEDOTIN
     Indication: Diffuse large B-cell lymphoma

REACTIONS (4)
  - Renal cell carcinoma [Unknown]
  - Diffuse large B-cell lymphoma recurrent [Unknown]
  - Drug ineffective [Unknown]
  - Product use issue [Unknown]

NARRATIVE: CASE EVENT DATE: 20211101
